FAERS Safety Report 5702330-X (Version None)
Quarter: 2008Q2

REPORT INFORMATION
  Report Type: 
  Country: None (occurrence: None)
  Receive Date: 20080411
  Receipt Date: 20080401
  Transmission Date: 20081010
  Serious: Yes (Disabling)
  Sender: FDA-Public Use
  Company Number: US-KINGPHARMUSA00001-K200800376

PATIENT

DRUGS (3)
  1. ALTACE [Suspect]
     Dosage: 2.5 MG, QD
     Dates: start: 20080311
  2. DIURAL                             /00032601/ [Concomitant]
     Dosage: 40 MG, UNK
  3. CORTISONE [Concomitant]

REACTIONS (2)
  - ASTHENIA [None]
  - WALKING AID USER [None]
